FAERS Safety Report 13761260 (Version 1)
Quarter: 2017Q3

REPORT INFORMATION
  Report Type: Spontaneous
  Country: US (occurrence: US)
  Receive Date: 20170717
  Receipt Date: 20170717
  Transmission Date: 20171127
  Serious: Yes (Other)
  Sender: FDA-Public Use
  Company Number: US-ACTELION-A-US2017-156504

PATIENT
  Age: 47 Year
  Sex: Male

DRUGS (3)
  1. UPTRAVI [Suspect]
     Active Substance: SELEXIPAG
     Indication: PRODUCT USED FOR UNKNOWN INDICATION
     Route: 048
  2. AMBRISENTAN [Suspect]
     Active Substance: AMBRISENTAN
     Indication: PRODUCT USED FOR UNKNOWN INDICATION
     Dosage: 5 MG, UNK
     Route: 065
  3. XARELTO [Concomitant]
     Active Substance: RIVAROXABAN

REACTIONS (15)
  - Dyspnoea [Unknown]
  - Feeling abnormal [Unknown]
  - Photophobia [Unknown]
  - Ascites [Unknown]
  - Nasopharyngitis [Unknown]
  - Chest pain [Unknown]
  - Dizziness [Unknown]
  - Arthralgia [Unknown]
  - Pain in jaw [Unknown]
  - Fatigue [Unknown]
  - Heart rate increased [Unknown]
  - Decreased appetite [Unknown]
  - Diarrhoea [Unknown]
  - Flushing [Unknown]
  - Malaise [Unknown]
